FAERS Safety Report 7352939-5 (Version None)
Quarter: 2011Q1

REPORT INFORMATION
  Report Type: 
  Country: None (occurrence: None)
  Receive Date: 20110315
  Receipt Date: 20110308
  Transmission Date: 20110831
  Serious: Yes (Other)
  Sender: FDA-Public Use
  Company Number: GB-ROCHE-760849

PATIENT
  Age: 67 Year
  Sex: Female

DRUGS (4)
  1. CARBIMAZOLE [Suspect]
     Indication: HYPERTHYROIDISM
     Route: 065
  2. BENDROFLUMETHIAZIDE [Suspect]
     Indication: HYPERTENSION
     Route: 065
  3. RIBAVIRIN [Suspect]
     Indication: HEPATITIS C
     Route: 065
  4. PEGINTERFERON ALFA-2A [Suspect]
     Indication: HEPATITIS C
     Route: 065

REACTIONS (12)
  - ANGIOTENSIN CONVERTING ENZYME INCREASED [None]
  - ERYTHEMA NODOSUM [None]
  - EYELID OEDEMA [None]
  - TENDERNESS [None]
  - ARTHRALGIA [None]
  - DACRYOADENITIS ACQUIRED [None]
  - GAMMA-GLUTAMYLTRANSFERASE INCREASED [None]
  - NIGHT SWEATS [None]
  - EYE IRRITATION [None]
  - SARCOIDOSIS [None]
  - RASH [None]
  - ASPARTATE AMINOTRANSFERASE INCREASED [None]
